FAERS Safety Report 8862185 (Version 1)
Quarter: 2012Q4

REPORT INFORMATION
  Report Type: 
  Country: IT (occurrence: IT)
  Receive Date: 20121026
  Receipt Date: 20121026
  Transmission Date: 20130627
  Serious: Yes (Other)
  Sender: FDA-Public Use
  Company Number: IT-PFIZER INC-2012262274

PATIENT
  Age: 43 Year
  Sex: Male

DRUGS (5)
  1. NELFINAVIR MESILATE [Suspect]
     Indication: ACQUIRED IMMUNODEFICIENCY SYNDROME
     Dosage: UNK
  2. ZIDOVUDINE [Suspect]
     Indication: ACQUIRED IMMUNODEFICIENCY SYNDROME
     Dosage: UNK
  3. LAMIVUDINE [Suspect]
     Indication: ACQUIRED IMMUNODEFICIENCY SYNDROME
     Dosage: UNK
  4. AMPHOTERICIN B [Concomitant]
     Dosage: cumulative dose of 1.6 g
  5. FLUCONAZOLE [Concomitant]
     Indication: PROPHYLAXIS

REACTIONS (4)
  - Cryptococcosis [Unknown]
  - Immune reconstitution inflammatory syndrome [Unknown]
  - Pyrexia [Unknown]
  - Headache [Unknown]
